FAERS Safety Report 7053833-X (Version None)
Quarter: 2010Q4

REPORT INFORMATION
  Report Type: 
  Country: None (occurrence: None)
  Receive Date: 20101020
  Receipt Date: 20101007
  Transmission Date: 20110411
  Serious: Yes (Hospitalization)
  Sender: FDA-Public Use
  Company Number: PHHY2010SE66609

PATIENT
  Sex: Female

DRUGS (2)
  1. EXELON [Suspect]
     Indication: DEMENTIA
     Dosage: UNK
     Route: 062
     Dates: start: 20090101, end: 20100227
  2. EXELON [Suspect]
     Dosage: UNK
     Route: 062

REACTIONS (6)
  - DISCOMFORT [None]
  - FEELING ABNORMAL [None]
  - HALLUCINATION [None]
  - HYPOAESTHESIA [None]
  - NIGHTMARE [None]
  - VISION BLURRED [None]
